FAERS Safety Report 8006885-4 (Version None)
Quarter: 2011Q4

REPORT INFORMATION
  Report Type: 
  Country: None (occurrence: None)
  Receive Date: 20111227
  Receipt Date: 20111216
  Transmission Date: 20120403
  Serious: Yes (Other)
  Sender: FDA-Public Use
  Company Number: BR-JNJFOC-20110801138

PATIENT
  Sex: Female
  Weight: 75 kg

DRUGS (1)
  1. ORTHO EVRA [Suspect]
     Indication: CONTRACEPTION
     Dosage: 1 PATCH A WEEK, DURING 3 WEEKS FOLLOWED BY 1 PATCH FREE WEEK
     Route: 062
     Dates: start: 20090101

REACTIONS (2)
  - VARICOSE VEIN [None]
  - METRORRHAGIA [None]
